FAERS Safety Report 16379142 (Version 2)
Quarter: 2019Q3

REPORT INFORMATION
  Report Type: Spontaneous
  Country: AU (occurrence: AU)
  Receive Date: 20190531
  Receipt Date: 20190703
  Transmission Date: 20191004
  Serious: Yes (Other)
  Sender: FDA-Public Use
  Company Number: AU-JNJFOC-20190541876

PATIENT
  Age: 48 Year
  Sex: Female

DRUGS (2)
  1. CONCERTA [Suspect]
     Active Substance: METHYLPHENIDATE HYDROCHLORIDE
     Indication: PRODUCT USED FOR UNKNOWN INDICATION
     Route: 048
  2. DUROMINE [Interacting]
     Active Substance: PHENTERMINE
     Indication: DECREASED APPETITE
     Route: 065
     Dates: start: 20181115

REACTIONS (2)
  - Drug interaction [Unknown]
  - Haemorrhagic stroke [Recovering/Resolving]
